FAERS Safety Report 5487453-5 (Version None)
Quarter: 2007Q4

REPORT INFORMATION
  Report Type: 
  Country: None (occurrence: None)
  Receive Date: 20071016
  Receipt Date: 20071004
  Transmission Date: 20080405
  Serious: Yes (Death, Hospitalization, Other)
  Sender: FDA-Public Use
  Company Number: US-PFIZER INC-2006149944

PATIENT
  Sex: Male
  Weight: 74.8 kg

DRUGS (6)
  1. CELEBREX [Suspect]
     Indication: PAIN
     Dates: start: 20041001, end: 20051001
  2. BEXTRA [Suspect]
     Indication: PAIN
     Dates: start: 20040101, end: 20040301
  3. VIOXX [Suspect]
     Indication: PAIN
     Dates: start: 20040301, end: 20040930
  4. ZOCOR [Concomitant]
     Indication: BLOOD CHOLESTEROL INCREASED
     Dates: start: 20021107, end: 20051028
  5. CYCLOBENZAPRINE HCL [Concomitant]
     Indication: PAIN
     Dates: start: 20020528, end: 20051028
  6. HYDROCODONE [Concomitant]
     Indication: PAIN
     Dates: start: 20020417, end: 20051028

REACTIONS (3)
  - CARDIOVASCULAR DISORDER [None]
  - CEREBROVASCULAR ACCIDENT [None]
  - MYOCARDIAL INFARCTION [None]
